FAERS Safety Report 4395241-6 (Version None)
Quarter: 2004Q3

REPORT INFORMATION
  Report Type: 
  Country: None (occurrence: None)
  Receive Date: 20040706
  Receipt Date: 20040629
  Transmission Date: 20050211
  Serious: Yes (Death)
  Sender: FDA-Public Use
  Company Number: ERP04000241

PATIENT
  Sex: 0

DRUGS (1)
  1. DANTRIUM [Suspect]
     Indication: HYPERTHERMIA MALIGNANT
     Dosage: 20 MG, IV NOS
     Route: 042
     Dates: start: 20040628

REACTIONS (1)
  - MEDICATION ERROR [None]
